FAERS Safety Report 18291347 (Version 1)
Quarter: 2020Q3

REPORT INFORMATION
  Report Type: Spontaneous
  Country: FR (occurrence: FR)
  Receive Date: 20200922
  Receipt Date: 20200922
  Transmission Date: 20201103
  Serious: Yes (Hospitalization)
  Sender: FDA-Public Use
  Company Number: FR-SUN PHARMACEUTICAL INDUSTRIES LTD-2020RR-261303

PATIENT
  Age: 82 Year
  Sex: Male
  Weight: 82 kg

DRUGS (4)
  1. METRONIDAZOLE. [Suspect]
     Active Substance: METRONIDAZOLE
     Indication: HELICOBACTER GASTRITIS
     Dosage: ()
     Route: 048
     Dates: start: 20200819, end: 20200824
  2. CLARITHROMYCIN. [Suspect]
     Active Substance: CLARITHROMYCIN
     Indication: HELICOBACTER GASTRITIS
     Dosage: ()
     Route: 048
     Dates: start: 20200819, end: 20200824
  3. ESOMEPRAZOLE. [Concomitant]
     Active Substance: ESOMEPRAZOLE MAGNESIUM
     Indication: HELICOBACTER GASTRITIS
     Dosage: 1 DOSAGE FORM, DAILY
     Route: 048
     Dates: start: 20200731
  4. AMOXICILLIN. [Suspect]
     Active Substance: AMOXICILLIN
     Indication: HELICOBACTER GASTRITIS
     Dosage: ()
     Route: 048
     Dates: start: 20200819, end: 20200820

REACTIONS (3)
  - Dermatitis exfoliative generalised [Recovering/Resolving]
  - Erythema [Recovering/Resolving]
  - Rash pustular [Recovering/Resolving]

NARRATIVE: CASE EVENT DATE: 20200820
